FAERS Safety Report 8445095-3 (Version None)
Quarter: 2012Q2

REPORT INFORMATION
  Report Type: 
  Country: None (occurrence: None)
  Receive Date: 20120618
  Receipt Date: 20120611
  Transmission Date: 20120825
  Serious: Yes (Hospitalization)
  Sender: FDA-Public Use
  Company Number: FR-ROCHE-1077564

PATIENT
  Sex: Male

DRUGS (4)
  1. ARAVA [Concomitant]
  2. PREDNISONE TAB [Suspect]
     Indication: TRANSPLANT REJECTION
     Route: 002
     Dates: start: 20110318
  3. EVEROLIMUS [Suspect]
     Indication: TRANSPLANT REJECTION
     Route: 002
     Dates: start: 20110419
  4. CELLCEPT [Suspect]
     Indication: TRANSPLANT REJECTION
     Dates: start: 20110318, end: 20110809

REACTIONS (2)
  - BLOOD CREATINE INCREASED [None]
  - TRANSPLANT REJECTION [None]
